FAERS Safety Report 19881584 (Version 1)
Quarter: 2021Q3

REPORT INFORMATION
  Report Type: Spontaneous
  Country: BR (occurrence: BR)
  Receive Date: 20210925
  Receipt Date: 20210925
  Transmission Date: 20211014
  Serious: Yes (Other)
  Sender: FDA-Public Use
  Company Number: NVSC2021BR214806

PATIENT
  Age: 7 Year
  Sex: Male

DRUGS (1)
  1. RITALINA LA [Suspect]
     Active Substance: METHYLPHENIDATE HYDROCHLORIDE
     Indication: ATTENTION DEFICIT HYPERACTIVITY DISORDER
     Dosage: 10 MG, BID(STARTED 04 MONTHS AGO,1 BY MORNING AND 1 AT LUNCHTIME))
     Route: 065

REACTIONS (8)
  - Intentional self-injury [Not Recovered/Not Resolved]
  - Product quality issue [Unknown]
  - Haemorrhage [Not Recovered/Not Resolved]
  - Nervousness [Not Recovered/Not Resolved]
  - Irritability [Not Recovered/Not Resolved]
  - Anxiety [Not Recovered/Not Resolved]
  - Onychophagia [Not Recovered/Not Resolved]
  - Drug dependence [Not Recovered/Not Resolved]

NARRATIVE: CASE EVENT DATE: 20210914
